FAERS Safety Report 8607131 (Version 2)
Quarter: 2013Q2

REPORT INFORMATION
  Report Type: Spontaneous
  Country: US (occurrence: US)
  Receive Date: 20120611
  Receipt Date: 20130618
  Transmission Date: 20140414
  Serious: Yes (Hospitalization)
  Sender: FDA-Public Use
  Company Number: US-ASTRAZENECA-2012SE36146

PATIENT
  Age: 47 Year
  Sex: Female

DRUGS (5)
  1. NEXIUM [Suspect]
     Indication: GASTROOESOPHAGEAL REFLUX DISEASE
     Route: 048
     Dates: start: 2007, end: 2012
  2. PRILOSEC/OMEPRAZOLE [Suspect]
     Route: 048
     Dates: start: 2011
  3. DEXILANT [Concomitant]
     Dates: start: 201303
  4. TUMS [Concomitant]
  5. ALKA-SELTZER [Concomitant]

REACTIONS (4)
  - Cardiac disorder [Unknown]
  - Osteoporosis [Unknown]
  - Multiple fractures [Unknown]
  - Osteogenesis imperfecta [Unknown]
